FAERS Safety Report 9994892 (Version 1)
Quarter: 2014Q1

REPORT INFORMATION
  Report Type: Report from Study
  Country: GB (occurrence: GB)
  Receive Date: 20140311
  Receipt Date: 20140311
  Transmission Date: 20141002
  Serious: Yes (Hospitalization)
  Sender: FDA-Public Use
  Company Number: GB-JNJFOC-20140218388

PATIENT
  Sex: Male
  Weight: 106 kg

DRUGS (3)
  1. STELARA [Suspect]
     Indication: PSORIASIS
     Route: 058
     Dates: start: 20121029
  2. CO-CODAMOL [Concomitant]
     Route: 065
     Dates: start: 20131104, end: 20131118
  3. PARACETAMOL [Concomitant]
     Route: 065
     Dates: start: 20131104, end: 20131118

REACTIONS (1)
  - Benign renal neoplasm [Unknown]
